FAERS Safety Report 6592755-5 (Version None)
Quarter: 2010Q1

REPORT INFORMATION
  Report Type: 
  Country: None (occurrence: None)
  Receive Date: 20100212
  Receipt Date: 20100113
  Transmission Date: 20100710
  Serious: Yes (Hospitalization)
  Sender: FDA-Public Use
  Company Number: 1000011731

PATIENT
  Age: 62 Year
  Sex: Female

DRUGS (6)
  1. ACAMPROSATE (ACAMPROSATE CALCIUM) (333 MILIGRAM, TABLETS) [Suspect]
     Indication: ALCOHOLISM
     Dosage: 1998 MG (666 MG, 3 IN 1 D),ORAL
     Route: 048
     Dates: end: 20090401
  2. METFORMIN (TABLETS) [Suspect]
     Indication: DIABETES MELLITUS
     Dosage: 3 GM (1 GM, 3 IN 1 D), ORAL
     Route: 048
     Dates: end: 20090331
  3. DIAMICRON (30 MILLIGRAM, TABLETS) [Suspect]
     Indication: DIABETES MELLITUS
     Dosage: 30 MG (30 MG, 1 IN 1 D), ORAL
     Route: 048
     Dates: end: 20090331
  4. ENALAPRIL MALEATE AND HYDROCHLOROTHIAZIDE [Suspect]
     Indication: HYPERTENSION
     Dosage: 1 DOSAGE FORMS (1 DOSAGE FORMS, 1 IN 1 D), ORAL
     Route: 048
     Dates: end: 20090331
  5. NEBIVOLOL (5 MILLIGRAM, TABLETS) [Suspect]
     Indication: HYPERTENSION
     Dosage: 5 MG (5 MG, 1 IN 1 D), ORAL
     Route: 048
  6. SERESTA (75 MILLIGRAM, TABLETS) [Suspect]
     Dosage: 75 MG (75 MG, 1 IN 1 D), ORAL
     Route: 048
     Dates: end: 20090401

REACTIONS (6)
  - CONTINUOUS HAEMODIAFILTRATION [None]
  - DEHYDRATION [None]
  - HYPERKALAEMIA [None]
  - HYPOGLYCAEMIA [None]
  - LACTIC ACIDOSIS [None]
  - RENAL FAILURE ACUTE [None]
